FAERS Safety Report 22852122 (Version 3)
Quarter: 2024Q1

REPORT INFORMATION
  Report Type: Report from Study
  Country: GB (occurrence: GB)
  Receive Date: 20230823
  Receipt Date: 20240105
  Transmission Date: 20240410
  Serious: Yes (Other)
  Sender: FDA-Public Use
  Company Number: GB-ABBVIE-5374735

PATIENT
  Sex: Female

DRUGS (2)
  1. CARBIDOPA\LEVODOPA [Suspect]
     Active Substance: CARBIDOPA\LEVODOPA
     Indication: Parkinson^s disease
     Dosage: 20MG/5MG; MD: 7.0 MLS CR:  2.7 ML/HR  ED:3.0ML  NIGHT PUMP  2.2ML/HR
     Route: 050
  2. CARBIDOPA\LEVODOPA [Suspect]
     Active Substance: CARBIDOPA\LEVODOPA
     Dosage: MD: 7.0 MLS, CR: 2.8 ML/HR, ED:3.0ML, NIGHT PUMP 2.2ML/HR
     Route: 050

REACTIONS (14)
  - Hernia [Unknown]
  - Oxygen saturation decreased [Unknown]
  - Dyspnoea [Not Recovered/Not Resolved]
  - Adverse drug reaction [Unknown]
  - Freezing phenomenon [Unknown]
  - Muscle rigidity [Unknown]
  - Stress [Unknown]
  - Hallucination [Not Recovered/Not Resolved]
  - Dystonia [Unknown]
  - Constipation [Unknown]
  - Cholecystectomy [Unknown]
  - Weight decreased [Unknown]
  - Cellulitis [Unknown]
  - Dyspnoea [Unknown]
